FAERS Safety Report 12519659 (Version 3)
Quarter: 2016Q3

REPORT INFORMATION
  Report Type: Spontaneous
  Country: US (occurrence: US)
  Receive Date: 20160630
  Receipt Date: 20160913
  Transmission Date: 20161109
  Serious: No
  Sender: FDA-Public Use
  Company Number: US-RECKITT BENCKISER HEALTHCARE INT LIMITED-RB-85347-2016

PATIENT
  Sex: Female

DRUGS (2)
  1. MUCINEX [Suspect]
     Active Substance: GUAIFENESIN
     Indication: PRODUCT USED FOR UNKNOWN INDICATION
     Dosage: 1 DF, UNK
     Route: 065
     Dates: start: 2016
  2. MUCINEX [Suspect]
     Active Substance: GUAIFENESIN
     Dosage: 1 UNK, UNK
     Route: 065
     Dates: start: 20160331

REACTIONS (3)
  - Movement disorder [Unknown]
  - Visual impairment [Unknown]
  - Nightmare [Unknown]

NARRATIVE: CASE EVENT DATE: 2016
